FAERS Safety Report 20240950 (Version 1)
Quarter: 2021Q4

REPORT INFORMATION
  Report Type: Spontaneous
  Country: US (occurrence: None)
  Receive Date: 20211228
  Receipt Date: 20211228
  Transmission Date: 20220303
  Serious: Yes (Life-Threatening, Hospitalization, Disabling, Other)
  Sender: FDA-Public Use
  Company Number: None

PATIENT
  Age: 48 Year
  Sex: Male
  Weight: 136.1 kg

DRUGS (7)
  1. BARICITINIB [Suspect]
     Active Substance: BARICITINIB
     Indication: COVID-19
     Dosage: FREQUENCY : DAILY;?
     Route: 048
     Dates: start: 20211130, end: 20211213
  2. indomethacin 50 mg capsule [Concomitant]
     Dates: start: 20211125, end: 20211201
  3. dexamethasone 6 mg injection [Concomitant]
     Dates: start: 20211125, end: 20211204
  4. ampicillin-sulbactam 3 gm IV [Concomitant]
     Dates: start: 20211125, end: 20211201
  5. carbidopa-levodopa 50-500 mg po [Concomitant]
     Dates: start: 20211125, end: 20211219
  6. escitalopram 20 mg po [Concomitant]
     Dates: start: 20211125, end: 20211201
  7. fluvoxamine 50 mg po [Concomitant]
     Dates: start: 20211125, end: 20211201

REACTIONS (3)
  - Acute kidney injury [None]
  - Blood potassium increased [None]
  - Procedural intestinal perforation [None]

NARRATIVE: CASE EVENT DATE: 20211219
